FAERS Safety Report 8843060 (Version 1)
Quarter: 2012Q4

REPORT INFORMATION
  Report Type: 
  Country: DE (occurrence: DE)
  Receive Date: 20121016
  Receipt Date: 20121016
  Transmission Date: 20130627
  Serious: Yes (Other)
  Sender: FDA-Public Use
  Company Number: DE-PFIZER INC-2012255930

PATIENT
  Age: 29 Year
  Sex: Female
  Weight: 73 kg

DRUGS (3)
  1. SERTRALINE HCL [Suspect]
     Indication: DEPRESSION
     Dosage: 100 mg, 1x/day
     Route: 048
  2. SERTRALINE HCL [Suspect]
     Dosage: 50 mg, 1x/day
     Route: 048
  3. FOLIC ACID [Concomitant]
     Indication: PROPHYLAXIS OF NEURAL TUBE DEFECT
     Dosage: 0.8 mg, 1x/day
     Route: 048
     Dates: start: 20110213, end: 20111106

REACTIONS (3)
  - Hip dysplasia [Unknown]
  - Nasopharyngitis [Unknown]
  - Streptococcus test positive [Unknown]
